FAERS Safety Report 9856377 (Version 6)
Quarter: 2020Q2

REPORT INFORMATION
  Report Type: Spontaneous
  Country: US (occurrence: US)
  Receive Date: 20140130
  Receipt Date: 20200501
  Transmission Date: 20200714
  Serious: Yes (Other)
  Sender: FDA-Public Use
  Company Number: US-PFIZER INC-2014027327

PATIENT
  Age: 70 Year
  Sex: Female
  Weight: 65 kg

DRUGS (5)
  1. DETROL LA [Suspect]
     Active Substance: TOLTERODINE TARTRATE
     Dosage: 4 MG, UNK (7 TIMES A WEEK )
  2. DETROL LA [Suspect]
     Active Substance: TOLTERODINE TARTRATE
     Indication: BLADDER DYSFUNCTION
     Dosage: 4 MG, DAILY (ONE TAB EVERY DAY)
  3. DETROL LA [Suspect]
     Active Substance: TOLTERODINE TARTRATE
     Indication: CYSTITIS INTERSTITIAL
     Dosage: UNK UNK, WEEKLY (3 OR 4 TABLETS A WEEK)
  4. ELMIRON [Concomitant]
     Active Substance: PENTOSAN POLYSULFATE SODIUM
     Indication: BLADDER DYSFUNCTION
     Dosage: UNK
  5. DETROL LA [Suspect]
     Active Substance: TOLTERODINE TARTRATE
     Dosage: 4 MG, DAILY
     Route: 048
     Dates: start: 2012

REACTIONS (6)
  - Nasopharyngitis [Not Recovered/Not Resolved]
  - Product use issue [Unknown]
  - Off label use [Unknown]
  - Feeling abnormal [Unknown]
  - Deafness unilateral [Unknown]
  - Headache [Unknown]

NARRATIVE: CASE EVENT DATE: 201401
